FAERS Safety Report 6597968-4 (Version None)
Quarter: 2010Q1

REPORT INFORMATION
  Report Type: 
  Country: None (occurrence: None)
  Receive Date: 20100223
  Receipt Date: 20091209
  Transmission Date: 20100710
  Serious: No
  Sender: FDA-Public Use
  Company Number: US-ALLERGAN-0917539US

PATIENT
  Sex: Male

DRUGS (1)
  1. BOTOX COSMETIC [Suspect]
     Indication: SKIN WRINKLING
     Dosage: UNK
     Route: 030
     Dates: start: 20091016, end: 20091016

REACTIONS (1)
  - DRUG INEFFECTIVE [None]
